FAERS Safety Report 8047939-6 (Version None)
Quarter: 2012Q1

REPORT INFORMATION
  Report Type: 
  Country: None (occurrence: None)
  Receive Date: 20120116
  Receipt Date: 20120103
  Transmission Date: 20120608
  Serious: Yes (Hospitalization)
  Sender: FDA-Public Use
  Company Number: US-ABBOTT-12P-163-0889887-01

PATIENT
  Sex: Male

DRUGS (12)
  1. SULFONA UREA [Concomitant]
     Indication: PRODUCT USED FOR UNKNOWN INDICATION
  2. NSAIDS [Concomitant]
     Indication: PRODUCT USED FOR UNKNOWN INDICATION
  3. ACE INHIBITORS [Concomitant]
     Indication: PRODUCT USED FOR UNKNOWN INDICATION
  4. DIURETICS [Concomitant]
     Indication: PRODUCT USED FOR UNKNOWN INDICATION
  5. SIMVASTATIN [Concomitant]
     Indication: DYSLIPIDAEMIA
  6. ASPIRIN [Concomitant]
     Indication: PRODUCT USED FOR UNKNOWN INDICATION
  7. METFORMIN HCL [Concomitant]
     Indication: PRODUCT USED FOR UNKNOWN INDICATION
  8. NIASPAN [Suspect]
     Indication: DYSLIPIDAEMIA
     Route: 048
     Dates: start: 20081124, end: 20091201
  9. NIASPAN [Suspect]
     Indication: ARTERIOSCLEROSIS
  10. SIMVASTATIN [Concomitant]
     Indication: ARTERIOSCLEROSIS
     Dates: start: 20081124, end: 20091201
  11. BETA BLOCKERS [Concomitant]
     Indication: PRODUCT USED FOR UNKNOWN INDICATION
  12. PLAVIX [Concomitant]
     Indication: PRODUCT USED FOR UNKNOWN INDICATION

REACTIONS (1)
  - GASTROENTERITIS [None]
